FAERS Safety Report 21148985 (Version 1)
Quarter: 2022Q3

REPORT INFORMATION
  Report Type: Spontaneous
  Country: US (occurrence: US)
  Receive Date: 20220729
  Receipt Date: 20220729
  Transmission Date: 20221027
  Serious: No
  Sender: FDA-Public Use
  Company Number: US-NOVOPROD-911926

PATIENT
  Age: 70 Year
  Sex: Female

DRUGS (1)
  1. OZEMPIC [Suspect]
     Active Substance: SEMAGLUTIDE
     Indication: Product used for unknown indication
     Dosage: 1.0MG
     Route: 058
     Dates: start: 2021

REACTIONS (9)
  - Hypotension [Unknown]
  - Palpitations [Unknown]
  - Alopecia [Unknown]
  - Dry mouth [Unknown]
  - Peripheral coldness [Unknown]
  - Headache [Unknown]
  - Blood glucose decreased [Unknown]
  - Weight decreased [Unknown]
  - Injection site swelling [Unknown]

NARRATIVE: CASE EVENT DATE: 20211201
